FAERS Safety Report 19057832 (Version 1)
Quarter: 2021Q1

REPORT INFORMATION
  Report Type: Spontaneous
  Country: DE (occurrence: DE)
  Receive Date: 20210324
  Receipt Date: 20210324
  Transmission Date: 20210420
  Serious: Yes (Death, Hospitalization, Congenital Anomaly, Other)
  Sender: FDA-Public Use
  Company Number: DE-TEVA-2021-DE-1892067

PATIENT
  Age: 0 Year
  Sex: Male

DRUGS (1)
  1. OLMESARTAN [Suspect]
     Active Substance: OLMESARTAN
     Indication: HYPERTENSION
     Dosage: 20 MILLIGRAM DAILY; 20MG 1?0?0 BY 02/21/2021?USE FOR SEVERAL YEARS
     Route: 015
     Dates: end: 20210221

REACTIONS (12)
  - Oligohydramnios [Unknown]
  - Pulmonary hypertension [Fatal]
  - Bone disorder [Unknown]
  - Pulmonary hypoplasia [Fatal]
  - Renal failure [Unknown]
  - Maternal drugs affecting foetus [Unknown]
  - Hypercapnia [Unknown]
  - Foetal growth restriction [Unknown]
  - Hypoxia [Unknown]
  - Cranial sutures widening [Unknown]
  - Foetal exposure during pregnancy [Unknown]
  - Hypertension [Unknown]

NARRATIVE: CASE EVENT DATE: 20210201
